FAERS Safety Report 26063932 (Version 2)
Quarter: 2025Q4

REPORT INFORMATION
  Report Type: Spontaneous
  Country: AU (occurrence: AU)
  Receive Date: 20251119
  Receipt Date: 20251222
  Transmission Date: 20260117
  Serious: Yes (Other)
  Sender: AMGEN
  Company Number: AU-AMGEN-AUSSP2025224748

PATIENT

DRUGS (4)
  1. ROMOSOZUMAB [Suspect]
     Active Substance: ROMOSOZUMAB
     Indication: Plasma cell myeloma
     Dosage: 210 MILLIGRAM, QMO (FOR 12 MONTHS)
     Route: 065
  2. ROMOSOZUMAB [Suspect]
     Active Substance: ROMOSOZUMAB
     Indication: Off label use
  3. CALCIUM [Concomitant]
     Active Substance: CALCIUM
     Dosage: 500-100MG (FOR 12 MONTHS)
  4. VITAMIN D [Concomitant]
     Active Substance: VITAMIN D NOS
     Dosage: 500-1000 MG INTERNATIONAL UNIT

REACTIONS (14)
  - Seizure [Unknown]
  - Pyrexia [Unknown]
  - Tooth infection [Unknown]
  - Rhinovirus infection [Unknown]
  - Abdominal pain [Unknown]
  - Hyperhidrosis [Unknown]
  - Rash [Unknown]
  - Injection site reaction [Unknown]
  - Nausea [Unknown]
  - Vomiting [Unknown]
  - Fatigue [Unknown]
  - Arthralgia [Unknown]
  - Off label use [Unknown]
  - Therapy non-responder [Unknown]
